FAERS Safety Report 7104830-7 (Version None)
Quarter: 2010Q4

REPORT INFORMATION
  Report Type: 
  Country: None (occurrence: None)
  Receive Date: 20101116
  Receipt Date: 20101109
  Transmission Date: 20110411
  Serious: Yes (Death)
  Sender: FDA-Public Use
  Company Number: US-JNJFOC-20100700382

PATIENT
  Sex: Female

DRUGS (5)
  1. FENTANYL-100 [Suspect]
     Indication: PAIN
     Route: 062
  2. OXYCODONE HCL [Suspect]
     Indication: ILL-DEFINED DISORDER
     Route: 065
  3. DURAGESIC-100 [Suspect]
     Indication: ILL-DEFINED DISORDER
     Route: 062
  4. PERCOCET [Suspect]
     Indication: ILL-DEFINED DISORDER
     Dosage: Q 4 TO 6 HOUR
     Route: 065
  5. VALIUM [Suspect]
     Indication: ILL-DEFINED DISORDER
     Route: 065

REACTIONS (3)
  - ACCIDENTAL DEATH [None]
  - DRUG TOXICITY [None]
  - MYOCARDIAL INFARCTION [None]
